FAERS Safety Report 9469592 (Version 1)
Quarter: 2013Q3

REPORT INFORMATION
  Report Type: Spontaneous
  Country: US (occurrence: US)
  Receive Date: 20130822
  Receipt Date: 20130822
  Transmission Date: 20140515
  Serious: No
  Sender: FDA-Public Use
  Company Number: US-B.I. PHARMACEUTICALS,INC./RIDGEFIELD-2013-BI-24896BP

PATIENT
  Age: 72 Year
  Sex: Female
  Weight: 121 kg

DRUGS (13)
  1. PRADAXA [Suspect]
     Indication: CARDIAC FAILURE CONGESTIVE
     Dosage: 150 MG
     Route: 048
     Dates: start: 201103, end: 20130729
  2. LYRICA [Concomitant]
     Indication: FIBROMYALGIA
     Dosage: 300 MG
     Route: 048
  3. METFORMIN ER [Concomitant]
     Indication: TYPE 2 DIABETES MELLITUS
     Dosage: 1000 MG
     Route: 048
  4. PANTOPRAZOLE [Concomitant]
     Indication: GASTROOESOPHAGEAL REFLUX DISEASE
     Dosage: 40 MG
     Route: 048
  5. ACCUPRIL [Concomitant]
     Indication: HYPERTENSION
     Dosage: 40 MG
     Route: 048
  6. METOPROLOL  TARTRATE [Concomitant]
     Indication: HYPERTENSION
     Dosage: 25 MG
     Route: 048
  7. ASPIRIN [Concomitant]
     Dosage: 81 MG
     Route: 048
  8. HYDROCODONE [Concomitant]
     Indication: PAIN
     Dosage: STRENGTH: 10/500MG; DAILY DOSE: 20/1000MG
     Route: 048
  9. JANUVIA [Concomitant]
     Indication: TYPE 2 DIABETES MELLITUS
     Route: 048
  10. GLUCOTROL XL [Concomitant]
     Indication: TYPE 2 DIABETES MELLITUS
     Dosage: 10 MG
     Route: 048
  11. SYMBICORT [Concomitant]
     Dosage: STRENGTH: 160/4.5MG; DAILY DOSE: 320/9.0MG
     Route: 055
  12. POTASSIUM CL ER [Concomitant]
     Dosage: 40 MEQ
     Route: 048
  13. MONTELUKAST [Concomitant]
     Indication: ASTHMA
     Dosage: 5 MG
     Route: 048

REACTIONS (4)
  - Nausea [Recovered/Resolved]
  - Asthenia [Recovered/Resolved]
  - Dizziness [Recovered/Resolved]
  - Off label use [Recovered/Resolved]
